FAERS Safety Report 4598507-X (Version None)
Quarter: 2005Q2

REPORT INFORMATION
  Report Type: 
  Country: None (occurrence: None)
  Receive Date: 20050209
  Receipt Date: 20041006
  Transmission Date: 20051028
  Serious: Yes (Hospitalization)
  Sender: FDA-Public Use
  Company Number: M2004-1589

PATIENT
  Age: 75 Year
  Sex: Female
  Weight: 62.1428 kg

DRUGS (3)
  1. LORATADINE [Suspect]
     Indication: SEASONAL ALLERGY
     Dosage: 10MG DAILY
  2. SYNTHROID [Concomitant]
  3. ZELCOR [Concomitant]

REACTIONS (2)
  - DIZZINESS [None]
  - SYNCOPE [None]
